FAERS Safety Report 9611683 (Version 1)
Quarter: 2013Q4

REPORT INFORMATION
  Report Type: Spontaneous
  Country: US (occurrence: US)
  Receive Date: 20131010
  Receipt Date: 20131010
  Transmission Date: 20140711
  Serious: No
  Sender: FDA-Public Use
  Company Number: US-PFIZER INC-2013289825

PATIENT
  Age: 66 Year
  Sex: Female
  Weight: 125 kg

DRUGS (2)
  1. GABAPENTIN [Suspect]
     Indication: FIBROMYALGIA
     Dosage: UNK
     Dates: start: 2013, end: 2013
  2. CENTRUM SILVER [Suspect]
     Indication: VITAMIN SUPPLEMENTATION
     Dosage: UNK,1XDAY
     Dates: start: 2013, end: 2013

REACTIONS (2)
  - Off label use [Unknown]
  - Local swelling [Recovered/Resolved]
